FAERS Safety Report 23357309 (Version 1)
Quarter: 2023Q4

REPORT INFORMATION
  Report Type: Spontaneous
  Country: US (occurrence: None)
  Receive Date: 20231230
  Receipt Date: 20231230
  Transmission Date: 20240110
  Serious: No
  Sender: FDA-Public Use
  Company Number: None

PATIENT
  Age: 30 Year
  Sex: Female

DRUGS (1)
  1. MONTELUKAST [Suspect]
     Active Substance: MONTELUKAST SODIUM
     Indication: Multiple allergies
     Dosage: OTHER QUANTITY : 1 TABLET(S);?FREQUENCY : AT BEDTIME;?
     Route: 048
     Dates: start: 20231228, end: 20231230

REACTIONS (8)
  - Somnolence [None]
  - Disturbance in attention [None]
  - Irritability [None]
  - Restlessness [None]
  - Abnormal dreams [None]
  - Agitation [None]
  - Emotional disorder [None]
  - Crying [None]

NARRATIVE: CASE EVENT DATE: 20231230
